FAERS Safety Report 9236945 (Version 2)
Quarter: 2013Q2

REPORT INFORMATION
  Report Type: Spontaneous
  Country: CO (occurrence: CO)
  Receive Date: 20130417
  Receipt Date: 20130522
  Transmission Date: 20140414
  Serious: Yes (Other)
  Sender: FDA-Public Use
  Company Number: PHHY2013CO036345

PATIENT
  Age: 9 Year
  Sex: Male

DRUGS (1)
  1. TRILEPTAL [Suspect]
     Indication: DYSTONIA
     Dosage: 990 MG, PER DAY
     Route: 048
     Dates: start: 2006, end: 20120928

REACTIONS (11)
  - Fungal skin infection [Recovered/Resolved]
  - Ear infection [Recovered/Resolved]
  - Otorrhoea [Recovered/Resolved]
  - Hypoacusis [Recovered/Resolved with Sequelae]
  - Ear haemorrhage [Recovered/Resolved]
  - Cognitive disorder [Recovered/Resolved]
  - Disorientation [Recovered/Resolved]
  - Somnolence [Recovered/Resolved]
  - Muscle twitching [Recovered/Resolved]
  - Dystonia [Recovered/Resolved]
  - Muscle contractions involuntary [Recovered/Resolved]
